FAERS Safety Report 12520302 (Version 1)
Quarter: 2016Q2

REPORT INFORMATION
  Report Type: Spontaneous
  Country: US (occurrence: None)
  Receive Date: 20160630
  Receipt Date: 20160630
  Transmission Date: 20160815
  Serious: Yes (Death, Hospitalization)
  Sender: FDA-Public Use
  Company Number: None

PATIENT
  Age: 59 Year
  Sex: Male
  Weight: 81.65 kg

DRUGS (1)
  1. INTRON A [Suspect]
     Active Substance: INTERFERON ALFA-2B
     Dosage: ALFA 2 INTERFERON 2B (INTRON-A) 84MU
     Dates: start: 20130729, end: 20140704

REACTIONS (7)
  - Constipation [None]
  - Muscle spasms [None]
  - Discomfort [None]
  - Disease progression [None]
  - Abdominal distension [None]
  - Pneumonia [None]
  - Atelectasis [None]

NARRATIVE: CASE EVENT DATE: 20151115
